FAERS Safety Report 11873207 (Version 1)
Quarter: 2015Q4

REPORT INFORMATION
  Report Type: Report from Study
  Country: US (occurrence: US)
  Receive Date: 20151228
  Receipt Date: 20151228
  Transmission Date: 20160305
  Serious: No
  Sender: FDA-Public Use
  Company Number: US-THERATECHNOLOGIES, INC.-TH-2015-00009

PATIENT
  Sex: Male
  Weight: 81.27 kg

DRUGS (1)
  1. EGRIFTA [Suspect]
     Active Substance: TESAMORELIN
     Indication: LIPOHYPERTROPHY
     Dosage: UNKNOWN

REACTIONS (4)
  - Memory impairment [Recovering/Resolving]
  - Dizziness [Recovering/Resolving]
  - Weight increased [Recovering/Resolving]
  - Increased appetite [Recovering/Resolving]
